FAERS Safety Report 13622796 (Version 1)
Quarter: 2017Q2

REPORT INFORMATION
  Report Type: Spontaneous
  Country: US (occurrence: US)
  Receive Date: 20170607
  Receipt Date: 20170607
  Transmission Date: 20170830
  Serious: No
  Sender: FDA-Public Use
  Company Number: US-AMGEN-USASP2017085740

PATIENT
  Age: 57 Year
  Sex: Male

DRUGS (1)
  1. ENBREL [Suspect]
     Active Substance: ETANERCEPT
     Indication: RHEUMATOID ARTHRITIS
     Dosage: 50 MG, QWK
     Route: 058
     Dates: start: 2016

REACTIONS (7)
  - Musculoskeletal pain [Recovering/Resolving]
  - Injection site pruritus [Unknown]
  - Injection site erythema [Unknown]
  - Injection site rash [Unknown]
  - Back pain [Recovering/Resolving]
  - Arthralgia [Recovering/Resolving]
  - Injection site pain [Unknown]

NARRATIVE: CASE EVENT DATE: 20170524
